FAERS Safety Report 10010875 (Version 2)
Quarter: 2014Q1

REPORT INFORMATION
  Report Type: Spontaneous
  Country: JP (occurrence: JP)
  Receive Date: 20140314
  Receipt Date: 20140314
  Transmission Date: 20141002
  Serious: Yes (Life-Threatening, Hospitalization, Other)
  Sender: FDA-Public Use
  Company Number: JP-009507513-1402JPN011010

PATIENT
  Age: 80 Year
  Sex: Female
  Weight: 46 kg

DRUGS (9)
  1. JANUVIA TABLETS 50MG [Suspect]
     Indication: DIABETES MELLITUS
     Dosage: 50 MG, QD
     Route: 048
     Dates: start: 20110615, end: 20140109
  2. MICARDIS [Suspect]
     Indication: HYPERTENSION
     Dosage: 40 MG, QD
     Route: 048
     Dates: start: 20120706, end: 20140109
  3. ASPIRIN [Concomitant]
     Dosage: DAILY DOSAGE UNKNOWN
  4. AMLODIPINE [Concomitant]
     Indication: HYPERTENSION
     Dosage: 5 MG, QD
     Route: 048
     Dates: start: 20120706, end: 20140109
  5. SORENTMIN (BROTIZOLAM) [Concomitant]
     Indication: INSOMNIA
     Dosage: 0.25 MG, QD
     Route: 048
     Dates: start: 200501, end: 20140109
  6. SERENACE [Concomitant]
     Indication: INSOMNIA
     Dosage: 1 MG, QD
     Route: 048
     Dates: start: 200501, end: 20140109
  7. MAGMITT [Concomitant]
     Indication: CONSTIPATION
     Dosage: 330 MG, QID
     Route: 048
     Dates: start: 201106, end: 20140109
  8. ALOSENN (SENNA) [Concomitant]
     Indication: CONSTIPATION
     Dosage: 0.5 G, QD
     Route: 048
     Dates: start: 200005, end: 20140109
  9. PAROXETINE [Concomitant]
     Indication: DEPRESSION
     Dosage: 20 MG, BID
     Route: 048
     Dates: start: 200501, end: 20140206

REACTIONS (8)
  - Interstitial lung disease [Not Recovered/Not Resolved]
  - Pancreatitis [Recovered/Resolved]
  - Disseminated intravascular coagulation [Unknown]
  - Tracheostomy [Unknown]
  - Mechanical ventilation [Unknown]
  - Gastric haemorrhage [Unknown]
  - Hepatic function abnormal [Unknown]
  - Cholelithiasis [Unknown]
